FAERS Safety Report 19788966 (Version 1)
Quarter: 2021Q3

REPORT INFORMATION
  Report Type: Spontaneous
  Country: US (occurrence: US)
  Receive Date: 20210905
  Receipt Date: 20210905
  Transmission Date: 20211014
  Serious: No
  Sender: FDA-Public Use
  Company Number: US-JNJFOC-20210846722

PATIENT
  Age: 44 Year
  Sex: Female
  Weight: 95.79 kg

DRUGS (1)
  1. TREMFYA [Suspect]
     Active Substance: GUSELKUMAB
     Indication: PSORIASIS
     Route: 065

REACTIONS (4)
  - Inappropriate schedule of product administration [Unknown]
  - Accidental exposure to product [Unknown]
  - Psoriasis [Unknown]
  - Device issue [Unknown]

NARRATIVE: CASE EVENT DATE: 202108
